FAERS Safety Report 12375265 (Version 1)
Quarter: 2016Q2

REPORT INFORMATION
  Report Type: Spontaneous
  Country: US (occurrence: None)
  Receive Date: 20160516
  Receipt Date: 20160516
  Transmission Date: 20160815
  Serious: Yes (Hospitalization)
  Sender: FDA-Public Use
  Company Number: None

PATIENT
  Age: 59 Year
  Sex: Male

DRUGS (1)
  1. COPAXONE [Suspect]
     Active Substance: GLATIRAMER ACETATE
     Indication: MULTIPLE SCLEROSIS
     Dosage: 40MG THREE TIMES WEEKLY SQ
     Route: 058
     Dates: start: 20151019

REACTIONS (3)
  - Infection in an immunocompromised host [None]
  - Rash erythematous [None]
  - Necrotising fasciitis [None]

NARRATIVE: CASE EVENT DATE: 20160507
